FAERS Safety Report 8806687 (Version 2)
Quarter: 2013Q2

REPORT INFORMATION
  Report Type: Spontaneous
  Country: DE (occurrence: None)
  Receive Date: 20120919
  Receipt Date: 20130429
  Transmission Date: 20140414
  Serious: Yes (Life-Threatening, Hospitalization)
  Sender: FDA-Public Use
  Company Number: GER/GER/12/0025884

PATIENT
  Age: 82 Year
  Sex: Female
  Weight: 67 kg

DRUGS (8)
  1. METFORMIN [Suspect]
     Indication: TYPE 2 DIABETES MELLITUS
     Dosage: 500 MG, 2-2-1, ORAL
     Route: 048
     Dates: start: 20100521
  2. CARVEDILOL [Concomitant]
  3. AMLODIPINE [Concomitant]
  4. RAMIPRIL [Concomitant]
  5. ASS 100 (ACETYLSALICYLIC ACID) [Concomitant]
  6. TORASEMIDE [Concomitant]
  7. CLONIDIN (CLONIDINE HYDROCHLORIDE) [Concomitant]
  8. JANUVIA (SITAGLIPTIN PHOSPHATE) [Concomitant]

REACTIONS (6)
  - Lactic acidosis [None]
  - Renal failure acute [None]
  - Hypothermia [None]
  - Hypotension [None]
  - Disorientation [None]
  - Haemodialysis [None]
